FAERS Safety Report 4924538-3 (Version None)
Quarter: 2006Q1

REPORT INFORMATION
  Report Type: 
  Country: None (occurrence: None)
  Receive Date: 20060222
  Receipt Date: 20060209
  Transmission Date: 20060701
  Serious: Yes (Other)
  Sender: FDA-Public Use
  Company Number: 2006-02-0407

PATIENT
  Age: 63 Year
  Sex: Male

DRUGS (2)
  1. PEG-INTRON [Suspect]
     Indication: CHRONIC HEPATITIS
     Dosage: 150 MCG QW SUBCUTANEOUS
     Route: 058
     Dates: start: 20050812, end: 20051221
  2. REBETOL [Suspect]
     Indication: CHRONIC HEPATITIS
     Dosage: 1200 MG QD ORAL
     Route: 048
     Dates: start: 20050812, end: 20051221

REACTIONS (1)
  - AGRANULOCYTOSIS [None]
